FAERS Safety Report 8388069-3 (Version None)
Quarter: 2012Q2

REPORT INFORMATION
  Report Type: 
  Country: None (occurrence: None)
  Receive Date: 20120525
  Receipt Date: 20120518
  Transmission Date: 20120825
  Serious: Yes (Hospitalization)
  Sender: FDA-Public Use
  Company Number: IT-B.I. PHARMACEUTICALS,INC./RIDGEFIELD-2012-EU-02795BY

PATIENT
  Sex: Female

DRUGS (7)
  1. LANSOPRAZOLE [Concomitant]
  2. LEVOTHYROXINE SODIUM [Concomitant]
  3. ZOLOFT [Suspect]
     Indication: DEPRESSION
     Dosage: 25 MG
     Route: 048
     Dates: start: 20120502, end: 20120506
  4. BISOPROLOL FUMARATE [Concomitant]
  5. XANAX [Concomitant]
  6. HALICON [Concomitant]
  7. TELMISARTAN AND HYDROCHLOROTHIAZIDE [Suspect]
     Indication: HYPERTENSION
     Dosage: 92.5 MG
     Route: 048
     Dates: start: 20120101

REACTIONS (8)
  - MICTURITION DISORDER [None]
  - STUPOR [None]
  - HYPONATRAEMIA [None]
  - EPILEPSY [None]
  - INAPPROPRIATE ANTIDIURETIC HORMONE SECRETION [None]
  - BLOOD OSMOLARITY DECREASED [None]
  - SYNCOPE [None]
  - GRAND MAL CONVULSION [None]
